FAERS Safety Report 25502507 (Version 1)
Quarter: 2025Q3

REPORT INFORMATION
  Report Type: Spontaneous
  Country: US (occurrence: US)
  Receive Date: 20250702
  Receipt Date: 20250702
  Transmission Date: 20251020
  Serious: Yes (Other)
  Sender: HISUN PHARMACEUTICALS USA INC
  Company Number: US-Hisun Pharmaceuticals USA Inc.-000486

PATIENT
  Age: 24 Year
  Sex: Male

DRUGS (1)
  1. CLADRIBINE [Suspect]
     Active Substance: CLADRIBINE
     Indication: Product used for unknown indication

REACTIONS (2)
  - Nausea [Unknown]
  - Vomiting [Unknown]
